FAERS Safety Report 6552736-4 (Version None)
Quarter: 2010Q1

REPORT INFORMATION
  Report Type: 
  Country: None (occurrence: None)
  Receive Date: 20100121
  Receipt Date: 20100106
  Transmission Date: 20100710
  Serious: Yes (Death)
  Sender: FDA-Public Use
  Company Number: KV201000010

PATIENT
  Age: 72 Year
  Sex: Male
  Weight: 99.2 kg

DRUGS (7)
  1. ISOSORBIDE MONONITRATE [Suspect]
     Indication: DRUG USE FOR UNKNOWN INDICATION
     Dosage: 30 MG, QD, ORAL
     Route: 048
  2. ACETAMINOPHEN [Concomitant]
  3. ASPIRIN [Concomitant]
  4. CAPTOPRIL [Concomitant]
  5. FISH OIL (FISH OIL) [Concomitant]
  6. METOPROLOL (METOPROLOL) [Concomitant]
  7. SIMVASTATIN (SINVASTATIN) [Concomitant]

REACTIONS (13)
  - ACIDOSIS [None]
  - ATELECTASIS [None]
  - CARDIAC ARREST [None]
  - CORONARY ARTERY STENOSIS [None]
  - HYPOTHERMIA [None]
  - ISCHAEMIC CARDIOMYOPATHY [None]
  - MYOCARDIAL INFARCTION [None]
  - NERVOUS SYSTEM DISORDER [None]
  - PLEURAL EFFUSION [None]
  - RENAL FAILURE [None]
  - RESPIRATORY FAILURE [None]
  - UNRESPONSIVE TO STIMULI [None]
  - VENTRICULAR TACHYCARDIA [None]
